FAERS Safety Report 9163170 (Version 2)
Quarter: 2013Q2

REPORT INFORMATION
  Report Type: Spontaneous
  Country: FR (occurrence: FR)
  Receive Date: 20130314
  Receipt Date: 20130417
  Transmission Date: 20140414
  Serious: Yes (Life-Threatening)
  Sender: FDA-Public Use
  Company Number: FR-009507513-1303FRA003902

PATIENT
  Age: 60 Year
  Sex: Female

DRUGS (3)
  1. ESMERON [Suspect]
     Indication: ANAESTHESIA
     Dosage: 50 MG, ONCE
     Route: 042
     Dates: start: 20130215, end: 20130215
  2. SUFENTANIL [Concomitant]
     Indication: ANAESTHESIA
     Dosage: UNK
     Dates: start: 20130215
  3. KETAMINE HYDROCHLORIDE [Concomitant]
     Indication: ANAESTHESIA
     Dosage: UNK
     Dates: start: 20130215

REACTIONS (2)
  - Oxygen saturation abnormal [Recovered/Resolved]
  - Hypotension [Recovered/Resolved]
